FAERS Safety Report 14509777 (Version 1)
Quarter: 2018Q1

REPORT INFORMATION
  Report Type: Spontaneous
  Country: US (occurrence: US)
  Receive Date: 20180209
  Receipt Date: 20180209
  Transmission Date: 20180509
  Serious: No
  Sender: FDA-Public Use
  Company Number: US-PFIZER INC-2018051717

PATIENT
  Age: 29 Year
  Sex: Male

DRUGS (2)
  1. GENOTROPIN MQ [Suspect]
     Active Substance: SOMATROPIN
     Indication: BLOOD TESTOSTERONE DECREASED
  2. GENOTROPIN MQ [Suspect]
     Active Substance: SOMATROPIN
     Indication: AMINO ACID LEVEL DECREASED
     Dosage: 0.4MG (HALF OF THE 0.8MG DOSE)

REACTIONS (3)
  - Drug effective for unapproved indication [Unknown]
  - Intentional product use issue [Unknown]
  - Agitation [Unknown]
